FAERS Safety Report 4269133-7 (Version None)
Quarter: 2004Q1

REPORT INFORMATION
  Report Type: 
  Country: None (occurrence: None)
  Receive Date: 20040108
  Receipt Date: 20031229
  Transmission Date: 20041129
  Serious: Yes (Hospitalization)
  Sender: FDA-Public Use
  Company Number: HQWYE919429DEC03

PATIENT
  Age: 79 Year
  Sex: Male

DRUGS (4)
  1. CORDARONE [Suspect]
     Indication: VENTRICULAR TACHYCARDIA
     Dosage: SEE IMAGE
     Route: 048
     Dates: start: 20030418, end: 20030528
  2. CORDARONE [Suspect]
     Indication: VENTRICULAR TACHYCARDIA
     Dosage: SEE IMAGE
     Route: 048
     Dates: start: 20030101
  3. ACE INHIBITOR (ACE INHIBITOR) [Concomitant]
  4. BETA BLOCKING AGENTS (BETA BLOCKING AGENTS) [Concomitant]

REACTIONS (7)
  - ACCIDENTAL OVERDOSE [None]
  - DYSPNOEA [None]
  - DYSPNOEA EXACERBATED [None]
  - HEPATIC ENZYME INCREASED [None]
  - MEDICATION ERROR [None]
  - OPTIC NERVE INJURY [None]
  - VISUAL ACUITY REDUCED [None]
